FAERS Safety Report 10250604 (Version 1)
Quarter: 2014Q2

REPORT INFORMATION
  Report Type: Spontaneous
  Country: US (occurrence: None)
  Receive Date: 20140618
  Receipt Date: 20140618
  Transmission Date: 20141212
  Serious: Yes (Life-Threatening, Hospitalization)
  Sender: FDA-Public Use
  Company Number: None

PATIENT
  Age: 51 Year
  Sex: Female

DRUGS (5)
  1. LISINOP/HCTZ GENERIC FOR PRINZIDE [Suspect]
     Indication: HYPERTENSION
     Route: 048
  2. LEVOTHYROXIN [Concomitant]
  3. FUROSEMIDE [Concomitant]
  4. VITAMIN D [Concomitant]
  5. IRON [Concomitant]

REACTIONS (4)
  - Swelling face [None]
  - Dyspnoea [None]
  - Unevaluable event [None]
  - Lip swelling [None]
